FAERS Safety Report 8521392-8 (Version None)
Quarter: 2012Q3

REPORT INFORMATION
  Report Type: 
  Country: None (occurrence: None)
  Receive Date: 20120719
  Receipt Date: 20120716
  Transmission Date: 20120928
  Serious: Yes (Death)
  Sender: FDA-Public Use
  Company Number: US-AMGEN-INDSP2012044035

PATIENT
  Age: 40 Year
  Sex: Male

DRUGS (4)
  1. METHOTREXATE [Concomitant]
     Dosage: UNK
     Dates: start: 20120501
  2. NSAID'S [Concomitant]
     Dosage: UNK
     Dates: start: 20120501
  3. ENBREL [Suspect]
     Indication: PSORIASIS
     Dosage: UNK
     Dates: start: 20120201
  4. ENBREL [Suspect]
     Indication: PSORIATIC ARTHROPATHY

REACTIONS (5)
  - APLASTIC ANAEMIA [None]
  - SEPSIS [None]
  - MALAISE [None]
  - PSORIASIS [None]
  - PSORIATIC ARTHROPATHY [None]
